FAERS Safety Report 9086658 (Version 1)
Quarter: 2013Q1

REPORT INFORMATION
  Report Type: Spontaneous
  Country: BR (occurrence: BR)
  Receive Date: 20130131
  Receipt Date: 20130131
  Transmission Date: 20140127
  Serious: Yes (Hospitalization)
  Sender: FDA-Public Use
  Company Number: BR-PFIZER INC-2013035908

PATIENT
  Age: 74 Year
  Sex: Female

DRUGS (2)
  1. EFEXOR XR [Suspect]
     Indication: DEMENTIA ALZHEIMER^S TYPE
     Dosage: 75 MG (ONE CAPSULE), 1X/DAY
     Route: 048
  2. ERANZ [Concomitant]
     Dosage: 5 MG, 1X/DAY

REACTIONS (2)
  - Cerebrovascular accident [Unknown]
  - Medication error [Unknown]
